FAERS Safety Report 5823379-2 (Version None)
Quarter: 2008Q3

REPORT INFORMATION
  Report Type: 
  Country: None (occurrence: None)
  Receive Date: 20080725
  Receipt Date: 20080218
  Transmission Date: 20090109
  Serious: No
  Sender: FDA-Public Use
  Company Number: A0710257A

PATIENT
  Age: 79 Year
  Sex: Female

DRUGS (6)
  1. HYCAMTIN [Suspect]
     Route: 042
     Dates: end: 20080301
  2. LIPITOR [Concomitant]
  3. BENICAR [Concomitant]
  4. LEVOTHYROXINE SODIUM [Concomitant]
  5. OXYCODONE HCL [Concomitant]
  6. PROMETHAZINE [Concomitant]

REACTIONS (4)
  - CONSTIPATION [None]
  - MUSCULAR WEAKNESS [None]
  - NAUSEA [None]
  - OFF LABEL USE [None]
